FAERS Safety Report 7472829-7 (Version None)
Quarter: 2011Q1

REPORT INFORMATION
  Report Type: 
  Country: None (occurrence: None)
  Receive Date: 20110302
  Receipt Date: 20100719
  Transmission Date: 20110831
  Serious: Yes (Hospitalization, Other)
  Sender: FDA-Public Use
  Company Number: 163-21880-10060528

PATIENT
  Age: 60 Year
  Sex: Female

DRUGS (2)
  1. REVLIMID [Suspect]
  2. REVLIMID [Suspect]
     Indication: MULTIPLE MYELOMA
     Dosage: 15 MG, 3 WEEKS ON, 1 WEEK OFF, PO
     Route: 048
     Dates: start: 20100519, end: 20100715

REACTIONS (9)
  - JOINT SWELLING [None]
  - NECK PAIN [None]
  - DIARRHOEA [None]
  - AMYLOIDOSIS [None]
  - CONSTIPATION [None]
  - BACK PAIN [None]
  - DYSPNOEA [None]
  - PLEURAL EFFUSION [None]
  - FATIGUE [None]
